FAERS Safety Report 7272732-1 (Version None)
Quarter: 2010Q4

REPORT INFORMATION
  Report Type: 
  Country: None (occurrence: None)
  Receive Date: 20101208
  Receipt Date: 20100426
  Transmission Date: 20110411
  Serious: Yes (Hospitalization)
  Sender: FDA-Public Use
  Company Number: 1000013395

PATIENT
  Sex: Female

DRUGS (1)
  1. NAMENDA [Suspect]
     Dates: start: 20091101

REACTIONS (1)
  - FALL [None]
